FAERS Safety Report 17633688 (Version 1)
Quarter: 2020Q2

REPORT INFORMATION
  Report Type: Spontaneous
  Country: US (occurrence: US)
  Receive Date: 20200406
  Receipt Date: 20200406
  Transmission Date: 20200713
  Serious: Yes (Other)
  Sender: FDA-Public Use
  Company Number: US-PURDUE PHARMA-USA-2020-0150907

PATIENT
  Sex: Female

DRUGS (1)
  1. OXYCONTIN [Suspect]
     Active Substance: OXYCODONE HYDROCHLORIDE
     Indication: PAIN
     Dosage: 80 MG, UNK
     Route: 048
     Dates: end: 2018

REACTIONS (5)
  - Spinal fusion surgery [Unknown]
  - Drug withdrawal syndrome [Not Recovered/Not Resolved]
  - Mental impairment [Not Recovered/Not Resolved]
  - Inadequate analgesia [Unknown]
  - Quality of life decreased [Not Recovered/Not Resolved]
